FAERS Safety Report 23293832 (Version 2)
Quarter: 2024Q4

REPORT INFORMATION
  Report Type: Spontaneous
  Country: IN (occurrence: IN)
  Receive Date: 20231213
  Receipt Date: 20241224
  Transmission Date: 20250115
  Serious: Yes (Death, Other)
  Sender: SANDOZ
  Company Number: IN-SANDOZ-SDZ2023IN065552

PATIENT
  Sex: Male

DRUGS (1)
  1. TACROLIMUS [Suspect]
     Active Substance: TACROLIMUS
     Indication: Liver transplant
     Dosage: 1 MG, BID
     Route: 048

REACTIONS (3)
  - Chronic kidney disease [Fatal]
  - Portal fibrosis [Unknown]
  - Diabetic nephropathy [Unknown]
